FAERS Safety Report 10343019 (Version 1)
Quarter: 2014Q3

REPORT INFORMATION
  Report Type: Spontaneous
  Country: US (occurrence: US)
  Receive Date: 20140725
  Receipt Date: 20140725
  Transmission Date: 20150326
  Serious: No
  Sender: FDA-Public Use
  Company Number: US-NOVEN-14US009785

PATIENT
  Sex: Female

DRUGS (1)
  1. BRISDELLE [Suspect]
     Active Substance: PAROXETINE MESYLATE
     Indication: MOOD SWINGS
     Dosage: 7.5 MG, UNK
     Route: 048

REACTIONS (3)
  - No adverse event [None]
  - Off label use [Not Recovered/Not Resolved]
  - Drug prescribing error [Not Recovered/Not Resolved]
